FAERS Safety Report 4499180-1 (Version None)
Quarter: 2004Q4

REPORT INFORMATION
  Report Type: 
  Country: None (occurrence: None)
  Receive Date: 20041111
  Receipt Date: 20041103
  Transmission Date: 20050328
  Serious: Yes (Hospitalization, Other)
  Sender: FDA-Public Use
  Company Number: PHBS2004DK14884

PATIENT
  Age: 64 Year
  Sex: Female
  Weight: 60 kg

DRUGS (2)
  1. LAMISIL [Suspect]
     Indication: ONYCHOMYCOSIS
     Dosage: 250 MG, QD
     Route: 048
     Dates: start: 20041004, end: 20041004
  2. LAMISIL [Suspect]
     Route: 048
     Dates: start: 20010726

REACTIONS (4)
  - BLOOD PRESSURE INCREASED [None]
  - ERYTHEMA [None]
  - HEADACHE [None]
  - NAUSEA [None]
